FAERS Safety Report 7853128-8 (Version None)
Quarter: 2011Q3

REPORT INFORMATION
  Report Type: 
  Country: None (occurrence: None)
  Receive Date: 20110915
  Receipt Date: 20110405
  Transmission Date: 20111222
  Serious: Yes (Hospitalization, Other)
  Sender: FDA-Public Use
  Company Number: 2011028161

PATIENT
  Age: 77 Year
  Sex: Male
  Weight: 70 kg

DRUGS (12)
  1. PRIVIGEN [Suspect]
     Indication: THROMBOCYTOPENIA
     Dosage: SEE IMAGE
     Route: 042
     Dates: start: 20110321, end: 20110322
  2. PRIVIGEN [Suspect]
     Indication: THROMBOCYTOPENIA
     Dosage: SEE IMAGE
     Route: 042
     Dates: start: 20110321, end: 20110322
  3. PRIVIGEN [Suspect]
     Indication: THROMBOCYTOPENIA
     Dosage: SEE IMAGE
     Route: 042
     Dates: start: 20110321, end: 20110322
  4. ACETAMINOPHEN [Concomitant]
  5. DIPHENHYDRAMINE HCL [Concomitant]
  6. RITUXIMAB (RITUXIMAB) [Concomitant]
  7. LEVOFLOXACIN [Concomitant]
  8. LISINOPRIL [Concomitant]
  9. ALBUTEROL INHALER (SALBUTAMOL) [Concomitant]
  10. DOCUSATE (DOCUSATE) [Concomitant]
  11. PRIVIGEN [Suspect]
  12. ALEMTUZUMAB (ALEMTUZUMAB) [Concomitant]

REACTIONS (4)
  - HAEMOLYSIS [None]
  - BLOOD BILIRUBIN INCREASED [None]
  - DRUG INEFFECTIVE [None]
  - ANTI-ERYTHROCYTE ANTIBODY POSITIVE [None]
